FAERS Safety Report 20198502 (Version 1)
Quarter: 2021Q4

REPORT INFORMATION
  Report Type: Spontaneous
  Country: US (occurrence: None)
  Receive Date: 20211216
  Receipt Date: 20211216
  Transmission Date: 20220304
  Serious: No
  Sender: FDA-Public Use
  Company Number: None

PATIENT
  Sex: Female

DRUGS (1)
  1. PIQRAY [Suspect]
     Active Substance: ALPELISIB
     Indication: Breast cancer female
     Dosage: OTHER QUANTITY : 150 TO 300MG;?FREQUENCY : DAILY;?
     Route: 048
     Dates: start: 20211026

REACTIONS (1)
  - Rash [None]
